FAERS Safety Report 6634835-1 (Version None)
Quarter: 2010Q1

REPORT INFORMATION
  Report Type: 
  Country: None (occurrence: None)
  Receive Date: 20100225
  Receipt Date: 20090811
  Transmission Date: 20100710
  Serious: No
  Sender: FDA-Public Use
  Company Number: 2009-00598

PATIENT
  Age: 62 Year
  Sex: Female
  Weight: 135.1719 kg

DRUGS (14)
  1. ZICAM COLD REMEDY NASAL GEL [Suspect]
     Dosage: FOR COLDS - 10 YEARS AGO
  2. ZICAM COLD REMEDY ORAL MIST [Suspect]
     Dosage: FOR COLDS-6-7 YRS AGO
     Dates: start: 20030101
  3. ZICAM COLD REMEDY RAPIDMELTS WITH VITAMIN C [Suspect]
     Dosage: FOR COLDS-ONGOING
  4. ZICAM DAYTIME MULTISYMPTOM COLD + FLU [Suspect]
     Dosage: FOR COLDS-ONGOING; FOR YEARS-ONGOING
  5. ZICAM NIGHTTIME MULTISYMPTOM COLD + FLU [Suspect]
     Dosage: FOR COLDS-ONGOING; FOR YEARS-ONGOING
  6. VERAPAMIL [Concomitant]
  7. ARIMIDAEX [Concomitant]
  8. ASPIRIN [Concomitant]
  9. LEVOTHYROXINE SODIUM [Concomitant]
  10. PRAVASTATIN [Concomitant]
  11. TEMAZEPAM [Concomitant]
  12. CALTRATE WITH VITAMIN D [Concomitant]
  13. OSTEOBIFLEX [Concomitant]
  14. IBUPROFEN [Concomitant]

REACTIONS (1)
  - ANOSMIA [None]
